FAERS Safety Report 25913790 (Version 1)
Quarter: 2025Q4

REPORT INFORMATION
  Report Type: Spontaneous
  Country: BR (occurrence: BR)
  Receive Date: 20251013
  Receipt Date: 20251013
  Transmission Date: 20260117
  Serious: Yes (Other)
  Sender: CHEPLAPHARM
  Company Number: BR-CHEPLA-2025011694

PATIENT
  Sex: Male
  Weight: 88 kg

DRUGS (5)
  1. CLONAZEPAM [Suspect]
     Active Substance: CLONAZEPAM
     Indication: Paraesthesia
     Dosage: INITIATED WITH 16 DROPS PER DAY AND DECREASED IT ON UNKNOWN DATE TO 12?DROPS PER DAY
     Route: 048
     Dates: start: 1995, end: 20250925
  2. CLONAZEPAM [Suspect]
     Active Substance: CLONAZEPAM
     Indication: Panic attack
     Dosage: INITIATED WITH 16 DROPS PER DAY AND DECREASED IT ON UNKNOWN DATE TO 12?DROPS PER DAY
     Route: 048
     Dates: start: 1995, end: 20250925
  3. CLONAZEPAM [Concomitant]
     Active Substance: CLONAZEPAM
     Dosage: GENERIC
  4. PAROXETINE [Concomitant]
     Active Substance: PAROXETINE
     Indication: Depression
     Dosage: ONE TABLET DAILY?DAILY DOSE: 1 DOSAGE FORM
     Route: 048
     Dates: start: 1995
  5. PRADAXA [Concomitant]
     Active Substance: DABIGATRAN ETEXILATE MESYLATE
     Indication: Cerebral thrombosis
     Dosage: ONE CAPSULE IN THE MORNING AND ONE AT NIGHT, ANTICOAGULANT?DAILY DOSE: 2 DOSAGE FORM

REACTIONS (12)
  - Cerebral thrombosis [Not Recovered/Not Resolved]
  - Gastritis [Not Recovered/Not Resolved]
  - Pruritus [Not Recovered/Not Resolved]
  - Dizziness [Not Recovered/Not Resolved]
  - Erythema [Not Recovered/Not Resolved]
  - Throat tightness [Not Recovered/Not Resolved]
  - Gamma-glutamyltransferase increased [Not Recovered/Not Resolved]
  - Blood cholesterol increased [Not Recovered/Not Resolved]
  - Therapy interrupted [Not Recovered/Not Resolved]
  - Product availability issue [Not Recovered/Not Resolved]
  - Drug dependence [Unknown]
  - Product use in unapproved indication [Recovered/Resolved]

NARRATIVE: CASE EVENT DATE: 19950101
